FAERS Safety Report 8789640 (Version 1)
Quarter: 2012Q4

REPORT INFORMATION
  Report Type: Spontaneous
  Country: US (occurrence: None)
  Receive Date: 20120905
  Receipt Date: 20120905
  Transmission Date: 20130627
  Serious: Yes (Other)
  Sender: FDA-Public Use
  Company Number: 2012-01269

PATIENT
  Age: 63 Year
  Sex: Male
  Weight: 136.08 kg

DRUGS (14)
  1. AMLODIPINE BESYLATE [Suspect]
     Indication: HYPERTENSION
     Dates: start: 201206
  2. SUNITINIB [Suspect]
     Indication: HEPATIC CANCER METASTATIC
     Route: 048
     Dates: start: 201204, end: 20120528
  3. ALPRAZOLAM [Concomitant]
  4. PROPANOLOL [Concomitant]
  5. RANITIDINE [Suspect]
  6. METFORMIN [Concomitant]
  7. SIMVASTATIN [Concomitant]
  8. OMEPRAZOLE [Concomitant]
  9. GLIPIZIDE [Concomitant]
  10. HYDROCLOROTHIAZIDE [Concomitant]
  11. BABY ASPIRIN [Concomitant]
  12. LISINOPRIL [Concomitant]
  13. PRAZOSIN [Concomitant]
  14. VITAMIN D [Concomitant]

REACTIONS (5)
  - Diarrhoea [None]
  - Oesophageal obstruction [None]
  - Abdominal pain [None]
  - Blood pressure increased [None]
  - Dysphagia [None]
